FAERS Safety Report 15361193 (Version 1)
Quarter: 2018Q3

REPORT INFORMATION
  Report Type: Spontaneous
  Country: IT (occurrence: IT)
  Receive Date: 20180907
  Receipt Date: 20180907
  Transmission Date: 20181010
  Serious: Yes (Life-Threatening, Hospitalization)
  Sender: FDA-Public Use
  Company Number: IT-SCIEGEN PHARMACEUTICALS INC-2018SCILIT00595

PATIENT
  Age: 68 Year
  Sex: Female

DRUGS (12)
  1. LITHIUM. [Suspect]
     Active Substance: LITHIUM
     Indication: AFFECTIVE DISORDER
     Dosage: 600 MG, PER DAY, FOR AT LEAST 1 YEAR
     Route: 065
  2. VENLAFAXINE [Concomitant]
     Active Substance: VENLAFAXINE HYDROCHLORIDE
     Indication: PRODUCT USED FOR UNKNOWN INDICATION
     Dosage: 37.5 MG, QD
     Route: 065
  3. ROPINIROLE. [Concomitant]
     Active Substance: ROPINIROLE
     Indication: PARKINSONISM
     Dosage: 2 MG, DAILY
     Route: 065
  4. PIMOZIDE. [Concomitant]
     Active Substance: PIMOZIDE
     Indication: PRODUCT USED FOR UNKNOWN INDICATION
     Dosage: UNK
     Route: 065
  5. IMIPRAMINE [Concomitant]
     Active Substance: IMIPRAMINE
     Indication: ANTIDEPRESSANT THERAPY
     Dosage: UNK
     Route: 065
  6. VENLAFAXINE [Concomitant]
     Active Substance: VENLAFAXINE HYDROCHLORIDE
     Dosage: 150 MG, QD
     Route: 065
  7. HYDROCHLOROTHIAZIDE TABLETS [Suspect]
     Active Substance: HYDROCHLOROTHIAZIDE
     Indication: PRODUCT USED FOR UNKNOWN INDICATION
     Dosage: UNK
     Route: 065
  8. LITHIUM. [Suspect]
     Active Substance: LITHIUM
     Dosage: INCREASED TO 900 MG, PER DAY
     Route: 065
  9. CARBAMAZEPINE. [Concomitant]
     Active Substance: CARBAMAZEPINE
     Indication: AFFECTIVE DISORDER
     Dosage: UNK
     Route: 065
  10. NORTRYPTILINE [Concomitant]
     Indication: ANTIDEPRESSANT THERAPY
     Dosage: UNK
     Route: 065
  11. ROPINIROLE. [Concomitant]
     Active Substance: ROPINIROLE
     Dosage: INCREASING TO 8 MG, QD
     Route: 065
  12. LEVODOPA [Concomitant]
     Active Substance: LEVODOPA
     Indication: PARKINSONISM
     Dosage: UNK
     Route: 065

REACTIONS (2)
  - Toxicity to various agents [Recovering/Resolving]
  - Hypercalcaemia [Recovered/Resolved]
